FAERS Safety Report 10085222 (Version 1)
Quarter: 2014Q2

REPORT INFORMATION
  Report Type: Spontaneous
  Country: GB (occurrence: GB)
  Receive Date: 20140417
  Receipt Date: 20140417
  Transmission Date: 20141212
  Serious: Yes (Hospitalization, Other)
  Sender: FDA-Public Use
  Company Number: PHHY2014GB043215

PATIENT
  Age: 47 Year
  Sex: Female
  Weight: 57 kg

DRUGS (5)
  1. ALENDRONATE [Suspect]
     Indication: OSTEOPOROSIS
     Dosage: 70 MG, QW
     Route: 048
     Dates: start: 20140314, end: 20140327
  2. LANSOPRAZOLE [Concomitant]
     Dosage: 30 MG, QD
  3. ADCAL-D3 [Concomitant]
     Dosage: UNK UKN, UNK
  4. CO-CODAMOL [Concomitant]
     Dosage: UNK
  5. METFORMIN [Concomitant]
     Dosage: 500 MG, BID

REACTIONS (3)
  - Odynophagia [Not Recovered/Not Resolved]
  - Treatment noncompliance [Unknown]
  - Oesophagitis [Not Recovered/Not Resolved]
